FAERS Safety Report 7562399-7 (Version None)
Quarter: 2011Q2

REPORT INFORMATION
  Report Type: 
  Country: None (occurrence: None)
  Receive Date: 20110614
  Receipt Date: 20110601
  Transmission Date: 20111010
  Serious: Yes (Life-Threatening, Hospitalization)
  Sender: FDA-Public Use
  Company Number: 2011VY000026

PATIENT
  Sex: Female

DRUGS (1)
  1. NAPRELAN [Suspect]
     Indication: METATARSALGIA
     Dosage: 500 MG;PRN;PO
     Route: 048

REACTIONS (3)
  - CARDIAC ARREST [None]
  - ATRIOVENTRICULAR BLOCK [None]
  - BALANCE DISORDER [None]
